FAERS Safety Report 18726447 (Version 1)
Quarter: 2021Q1

REPORT INFORMATION
  Report Type: Spontaneous
  Country: GB (occurrence: GB)
  Receive Date: 20210111
  Receipt Date: 20210111
  Transmission Date: 20210419
  Serious: Yes (Other)
  Sender: FDA-Public Use
  Company Number: GB-MYLANLABS-2021M1000172

PATIENT
  Age: 58 Year
  Sex: Male

DRUGS (4)
  1. VORICONAZOLE. [Interacting]
     Active Substance: VORICONAZOLE
     Indication: BRONCHOPULMONARY ASPERGILLOSIS
     Dosage: UNK
  2. ETHAMBUTOL [Suspect]
     Active Substance: ETHAMBUTOL HYDROCHLORIDE
     Indication: ATYPICAL MYCOBACTERIAL LOWER RESPIRATORY TRACT INFECTION
     Dosage: UNK
  3. RIFAMPICIN [Suspect]
     Active Substance: RIFAMPIN
     Indication: ATYPICAL MYCOBACTERIAL LOWER RESPIRATORY TRACT INFECTION
     Dosage: UNK
  4. AZITHROMYCIN ANHYDROUS. [Concomitant]
     Active Substance: AZITHROMYCIN ANHYDROUS
     Indication: ATYPICAL MYCOBACTERIAL LOWER RESPIRATORY TRACT INFECTION
     Dosage: UNK

REACTIONS (3)
  - Vision blurred [Unknown]
  - Labelled drug-drug interaction medication error [Recovered/Resolved]
  - Atypical mycobacterial lower respiratory tract infection [Recovered/Resolved]
